FAERS Safety Report 16523951 (Version 3)
Quarter: 2020Q3

REPORT INFORMATION
  Report Type: Spontaneous
  Country: CA (occurrence: CA)
  Receive Date: 20190703
  Receipt Date: 20200820
  Transmission Date: 20201102
  Serious: Yes (Other)
  Sender: FDA-Public Use
  Company Number: CA-CELLTRION INC.-2018CA024926

PATIENT

DRUGS (42)
  1. INFLECTRA [Suspect]
     Active Substance: INFLIXIMAB-DYYB
     Dosage: 300 MG, EVERY 5 WEEKS (OR 5 MG/KG ROUNDED UP DOSE EVERY 5 WEEKS)
     Route: 042
     Dates: start: 20190621
  2. TYLENOL [Concomitant]
     Active Substance: ACETAMINOPHEN
     Dosage: 650 MG, DAILY
     Route: 048
  3. MAGNESIUM SULFATE AND GLUCOSE [Concomitant]
     Dosage: 5 % BAG DAILY
  4. METHOTREXATE. [Concomitant]
     Active Substance: METHOTREXATE
     Dosage: 20 MG, WEEKLY
     Route: 048
  5. PENTASA [Concomitant]
     Active Substance: MESALAMINE
     Dosage: 4 G, DAILY
     Route: 048
  6. INFLECTRA [Suspect]
     Active Substance: INFLIXIMAB-DYYB
     Dosage: 600 MG, UNK
     Route: 042
     Dates: start: 20181128, end: 20181129
  7. HYDROMORPHONE [Concomitant]
     Active Substance: HYDROMORPHONE
     Dosage: 0.25 TO 0.5 MG EVERY 2 HOURS AS NEEDED (2 MG/ML INJ.)
     Route: 058
  8. ALUMINIUM MAGNESIUM HYDROXIDR [Concomitant]
     Dosage: 40 MG, EVERY 6 HOURS
     Route: 048
  9. 5 ASA LP [Concomitant]
     Dosage: 1000 MG, DAILY (500MG 2 SUPP)
     Route: 054
  10. FOLATE [Concomitant]
     Active Substance: FOLATE SODIUM
     Dosage: 1 MG, DAILY
  11. INFLECTRA [Suspect]
     Active Substance: INFLIXIMAB-DYYB
     Indication: COLITIS ULCERATIVE
     Dosage: 300 MG, UNK
     Route: 042
     Dates: start: 20181120, end: 20181121
  12. INFLECTRA [Suspect]
     Active Substance: INFLIXIMAB-DYYB
     Dosage: 10 MG/KG, (EVERY) 0,2,6 AND 6 WEEKS, THEN 5MG/KG EVERY 4 WEEKS
     Route: 042
     Dates: start: 20181130, end: 20190523
  13. INFLECTRA [Suspect]
     Active Substance: INFLIXIMAB-DYYB
     Dosage: UNK
     Route: 042
     Dates: start: 20190425
  14. INFLECTRA [Suspect]
     Active Substance: INFLIXIMAB-DYYB
     Dosage: 300 MG, EVERY 5 WEEKS (OR 5 MG/KG ROUNDED UP DOSE EVERY 5 WEEKS)
     Route: 042
     Dates: start: 20191004
  15. INFLECTRA [Suspect]
     Active Substance: INFLIXIMAB-DYYB
     Dosage: 300 MG, EVERY 5 WEEKS (OR 5 MG/KG ROUNDED UP DOSE EVERY 5 WEEKS)
     Route: 042
     Dates: start: 20200326
  16. METHYLPREDNISOLONE. [Concomitant]
     Active Substance: METHYLPREDNISOLONE
     Dosage: 50 MG, DAILY
     Route: 042
  17. VITAMIN D [COLECALCIFEROL] [Concomitant]
     Active Substance: CHOLECALCIFEROL
     Dosage: 1000 MG, DAILY
     Route: 048
  18. TENOFOVIR DISOPROXIL FUMARATE. [Concomitant]
     Active Substance: TENOFOVIR DISOPROXIL FUMARATE
     Dosage: 300 MG, 1 TABLET DAILY
     Route: 048
  19. PANTOPRAZOLE [Concomitant]
     Active Substance: PANTOPRAZOLE
     Dosage: 40 MG, DAILY
     Route: 048
  20. METHOTREXATE. [Concomitant]
     Active Substance: METHOTREXATE
     Dosage: 12.5 MG, WEEKLY
     Route: 048
  21. INFLECTRA [Suspect]
     Active Substance: INFLIXIMAB-DYYB
     Dosage: 10 MG/KG 0, 2 AND 6 WEEKS, THEN 5 MG/KG EVERY 4 WEEKS
     Route: 042
     Dates: start: 20190523
  22. INFLECTRA [Suspect]
     Active Substance: INFLIXIMAB-DYYB
     Dosage: 300 MG, EVERY 5 WEEKS (OR 5 MG/KG ROUNDED UP DOSE EVERY 5 WEEKS)
     Route: 042
     Dates: start: 20200428
  23. PREDNISONE. [Concomitant]
     Active Substance: PREDNISONE
     Dosage: 40 MG, TAPERING
     Route: 048
  24. ARGATROBAN. [Concomitant]
     Active Substance: ARGATROBAN
     Dosage: UNK
     Route: 042
  25. CALCIUM CITRATE [Concomitant]
     Active Substance: CALCIUM CITRATE
     Dosage: 1428 MG,2 TABLETS DAILY
     Route: 048
  26. HYDROMORPHONE [Concomitant]
     Active Substance: HYDROMORPHONE
     Dosage: 0.5 TO 1 MG Q 4 HOURS, AS NEEDED (1 MG TAB)
     Route: 048
  27. DIPHENHYDRAMINE [DIPHENHYDRAMINE HYDROCHLORIDE] [Concomitant]
     Active Substance: DIPHENHYDRAMINE HYDROCHLORIDE
     Indication: PREMEDICATION
     Dosage: 50 MG
     Dates: start: 20200812, end: 20200812
  28. INFLECTRA [Suspect]
     Active Substance: INFLIXIMAB-DYYB
     Dosage: 300 MG, (EVERY 4 WEEKS)
     Route: 042
  29. INFLECTRA [Suspect]
     Active Substance: INFLIXIMAB-DYYB
     Dosage: 300 MG, EVERY 5 WEEKS (OR 5 MG/KG ROUNDED UP DOSE EVERY 5 WEEKS)
     Route: 042
     Dates: start: 20200602
  30. INFLECTRA [Suspect]
     Active Substance: INFLIXIMAB-DYYB
     Dosage: 300 MG OR 5 MG/KG ROUNDED UP DOSE EVERY 5 WEEKS
     Route: 042
     Dates: start: 20200708
  31. ACETAMINOPHEN. [Concomitant]
     Active Substance: ACETAMINOPHEN
     Dosage: 650 MG, 30 MIN BEFORE INFLECTRA INFUSION
     Route: 048
  32. INFLECTRA [Suspect]
     Active Substance: INFLIXIMAB-DYYB
     Dosage: 300 MG, (EVERY 4 WEEKS)
     Route: 042
     Dates: start: 20200812
  33. METHYLPREDNISOLONE. [Concomitant]
     Active Substance: METHYLPREDNISOLONE
     Dosage: 60 MG, DAILY
     Route: 042
  34. CALCIUM CARBONATE. [Concomitant]
     Active Substance: CALCIUM CARBONATE
     Dosage: 1250 MG, 1 TABLET PER DAY 1X/DAY
  35. INFLECTRA [Suspect]
     Active Substance: INFLIXIMAB-DYYB
     Dosage: 600 MG, EVERY 4 WEEKS
     Route: 042
     Dates: start: 20181203
  36. INFLECTRA [Suspect]
     Active Substance: INFLIXIMAB-DYYB
     Dosage: UNK
     Route: 042
     Dates: start: 20190327
  37. INFLECTRA [Suspect]
     Active Substance: INFLIXIMAB-DYYB
     Dosage: 300 MG, EVERY 5 WEEKS (OR 5 MG/KG ROUNDED UP DOSE EVERY 5 WEEKS)
     Route: 042
     Dates: start: 20190829
  38. INFLECTRA [Suspect]
     Active Substance: INFLIXIMAB-DYYB
     Dosage: 300 MG, EVERY 5 WEEKS (OR 5 MG/KG ROUNDED UP DOSE EVERY 5 WEEKS)
     Route: 042
     Dates: start: 20200428
  39. FONDAPARINUX [Concomitant]
     Active Substance: FONDAPARINUX
     Dosage: 2.5 MG/0.5 ML?5 MG (1ML), DAILY
     Route: 058
     Dates: start: 2018
  40. PREDNISONE. [Concomitant]
     Active Substance: PREDNISONE
     Dosage: 40 MG, TAPERING
     Route: 065
  41. ONDANSETRON [Concomitant]
     Active Substance: ONDANSETRON
     Dosage: 4MG / 2ML
  42. IRON SUCROSE [Concomitant]
     Active Substance: IRON SUCROSE
     Dosage: 250 MG BAG (0.9%)
     Route: 042

REACTIONS (9)
  - Off label use [Unknown]
  - Musculoskeletal stiffness [Unknown]
  - Blood pressure decreased [Unknown]
  - Product use issue [Unknown]
  - Alopecia [Unknown]
  - Arthralgia [Unknown]
  - Condition aggravated [Unknown]
  - Chronic hepatitis B [Unknown]
  - Poor venous access [Unknown]

NARRATIVE: CASE EVENT DATE: 20200708
